FAERS Safety Report 17044362 (Version 2)
Quarter: 2019Q4

REPORT INFORMATION
  Report Type: Spontaneous
  Country: SI (occurrence: SI)
  Receive Date: 20191118
  Receipt Date: 20191213
  Transmission Date: 20200122
  Serious: Yes (Hospitalization, Other)
  Sender: FDA-Public Use
  Company Number: SI-JNJFOC-20191114321

PATIENT
  Age: 74 Year
  Sex: Male
  Weight: 126 kg

DRUGS (7)
  1. RIVAROXABAN [Suspect]
     Active Substance: RIVAROXABAN
     Indication: ATRIAL FIBRILLATION
     Dosage: UNK UNK, QD
     Route: 048
     Dates: start: 2014
  2. RIVAROXABAN [Suspect]
     Active Substance: RIVAROXABAN
     Dosage: UNK
     Route: 048
     Dates: start: 20191103
  3. CANDESARTAN. [Concomitant]
     Active Substance: CANDESARTAN
     Dosage: 8 MG, UNK
  4. INSULIN [Concomitant]
     Active Substance: INSULIN NOS
  5. RIVAROXABAN [Suspect]
     Active Substance: RIVAROXABAN
     Dosage: UNK
     Route: 048
     Dates: end: 20190919
  6. RIVAROXABAN [Suspect]
     Active Substance: RIVAROXABAN
     Dosage: UNK
     Route: 048
     Dates: start: 201909, end: 201910
  7. FUROSEMIDE. [Concomitant]
     Active Substance: FUROSEMIDE

REACTIONS (11)
  - Chest pain [Recovered/Resolved]
  - Ischaemic stroke [Recovered/Resolved]
  - Maxillofacial operation [Unknown]
  - Limb injury [Recovered/Resolved]
  - Cerebral arteriosclerosis [Recovered/Resolved]
  - Hypoaesthesia [Recovered/Resolved]
  - Ischaemic stroke [Recovered/Resolved]
  - Aortic stenosis [Recovered/Resolved]
  - Myalgia [Recovered/Resolved]
  - Hemiparesis [Recovered/Resolved]
  - Haemorrhagic transformation stroke [Recovered/Resolved]

NARRATIVE: CASE EVENT DATE: 201905
